FAERS Safety Report 8674456 (Version 5)
Quarter: 2013Q1

REPORT INFORMATION
  Report Type: Report from Study
  Country: DE (occurrence: DE)
  Receive Date: 20120720
  Receipt Date: 20130211
  Transmission Date: 20140127
  Serious: Yes (Other)
  Sender: FDA-Public Use
  Company Number: DE-ROCHE-1061577

PATIENT
  Age: 75 Year
  Sex: Female
  Weight: 79 kg

DRUGS (14)
  1. TOCILIZUMAB [Suspect]
     Indication: RHEUMATOID ARTHRITIS
     Route: 042
     Dates: start: 20120119
  2. TOCILIZUMAB [Suspect]
     Route: 042
     Dates: start: 20120216
  3. LEFLUNOMID [Concomitant]
     Route: 065
  4. NOVAMINSULFON [Concomitant]
  5. PANTOPRAZOL NATRIUM [Concomitant]
     Route: 065
  6. PARACETAMOL [Concomitant]
  7. DEKRISTOL [Concomitant]
     Dosage: 20000 E
     Route: 065
  8. SPIRONOLACTONE [Concomitant]
  9. CONCOR [Concomitant]
  10. MARCUMAR [Concomitant]
     Indication: ATRIAL FIBRILLATION
  11. DIGITOXIN [Concomitant]
  12. SIMVASTIN [Concomitant]
  13. ATACAND [Concomitant]
  14. TORASEMID [Concomitant]

REACTIONS (4)
  - Peripheral sensorimotor neuropathy [Not Recovered/Not Resolved]
  - Pain in extremity [Not Recovered/Not Resolved]
  - Eyelids pruritus [Not Recovered/Not Resolved]
  - Erythema of eyelid [Not Recovered/Not Resolved]
